FAERS Safety Report 4708400-7 (Version None)
Quarter: 2005Q3

REPORT INFORMATION
  Report Type: 
  Country: None (occurrence: None)
  Receive Date: 20050707
  Receipt Date: 20050616
  Transmission Date: 20060218
  Serious: Yes (Hospitalization)
  Sender: FDA-Public Use
  Company Number: JP-JNJFOC-20050604796

PATIENT
  Sex: Female
  Weight: 46 kg

DRUGS (7)
  1. FENTANYL [Suspect]
     Indication: CANCER PAIN
     Route: 062
     Dates: start: 20050607, end: 20050616
  2. OXYCONTIN [Concomitant]
     Indication: CANCER PAIN
     Route: 049
     Dates: start: 20050603, end: 20050607
  3. LOXONIN [Concomitant]
     Route: 049
  4. LOXONIN [Concomitant]
     Indication: CANCER PAIN
     Route: 049
  5. GASTER [Concomitant]
     Indication: GASTRITIS
     Route: 049
  6. NOVAMIN [Concomitant]
     Indication: NAUSEA
     Route: 049
  7. NAUZELIN [Concomitant]
     Indication: VOMITING
     Route: 054

REACTIONS (1)
  - LIVER FUNCTION TEST ABNORMAL [None]
